FAERS Safety Report 17016108 (Version 1)
Quarter: 2019Q4

REPORT INFORMATION
  Report Type: Spontaneous
  Country: US (occurrence: US)
  Receive Date: 20191109
  Receipt Date: 20191109
  Transmission Date: 20200122
  Serious: Yes (Death)
  Sender: FDA-Public Use
  Company Number: None

PATIENT
  Age: 74 Year
  Sex: Female
  Weight: 46.35 kg

DRUGS (10)
  1. FOLIC ACID 5MG [Concomitant]
     Active Substance: FOLIC ACID
     Dates: end: 20191025
  2. HYDROCHLOROTHIAZIDE 25MG [Concomitant]
     Active Substance: HYDROCHLOROTHIAZIDE
     Dates: end: 20191025
  3. AMLODIPINE [Concomitant]
     Active Substance: AMLODIPINE BESYLATE
     Dates: end: 20191025
  4. FAMOTIDINE 20MG [Concomitant]
     Active Substance: FAMOTIDINE
     Dates: end: 20191025
  5. SUTENT [Suspect]
     Active Substance: SUNITINIB MALATE
     Indication: RENAL CANCER
     Route: 048
     Dates: start: 20190413, end: 20191025
  6. LEVOTHYROXINE. [Concomitant]
     Active Substance: LEVOTHYROXINE
     Dates: end: 20191025
  7. METOPROLOL TARTRATE 25MG [Concomitant]
     Active Substance: METOPROLOL TARTRATE
     Dates: end: 20191025
  8. DONEPEZIL 5MG [Concomitant]
     Active Substance: DONEPEZIL
     Dates: end: 20191025
  9. ASPIRIN 325MG [Concomitant]
     Active Substance: ASPIRIN
     Dates: end: 20191025
  10. ATORVASTATIN 40MG [Concomitant]
     Active Substance: ATORVASTATIN
     Dates: end: 20191025

REACTIONS (1)
  - Death [None]

NARRATIVE: CASE EVENT DATE: 20191025
